FAERS Safety Report 18429328 (Version 3)
Quarter: 2022Q1

REPORT INFORMATION
  Report Type: Spontaneous
  Country: US (occurrence: US)
  Receive Date: 20201026
  Receipt Date: 20220118
  Transmission Date: 20220423
  Serious: No
  Sender: FDA-Public Use
  Company Number: US-PFIZER INC-2020414237

PATIENT
  Age: 59 Year
  Sex: Female

DRUGS (1)
  1. XELJANZ XR [Suspect]
     Active Substance: TOFACITINIB CITRATE
     Indication: Rheumatoid arthritis
     Dosage: 11 MG, 1X/DAY
     Route: 048
     Dates: start: 20201018

REACTIONS (7)
  - Anaemia [Unknown]
  - Fatigue [Unknown]
  - Movement disorder [Unknown]
  - Myalgia [Unknown]
  - Arthritis [Unknown]
  - Muscle atrophy [Unknown]
  - Skin injury [Recovered/Resolved]
